FAERS Safety Report 4814402-2 (Version None)
Quarter: 2005Q4

REPORT INFORMATION
  Report Type: 
  Country: None (occurrence: None)
  Receive Date: 20051028
  Receipt Date: 20050819
  Transmission Date: 20060501
  Serious: No
  Sender: FDA-Public Use
  Company Number: US-GLAXOSMITHKLINE-A0570944A

PATIENT
  Age: 70 Year
  Sex: Female

DRUGS (3)
  1. ADVAIR DISKUS 100/50 [Suspect]
     Indication: CHRONIC OBSTRUCTIVE PULMONARY DISEASE
     Dosage: 1PUFF TWICE PER DAY
     Route: 055
     Dates: start: 20040101
  2. PREMARIN [Concomitant]
  3. VITAMINS [Concomitant]

REACTIONS (5)
  - DYSPHAGIA [None]
  - DYSPHONIA [None]
  - MUSCULOSKELETAL PAIN [None]
  - PHARYNX DISCOMFORT [None]
  - SINUSITIS [None]
